FAERS Safety Report 5556557-0 (Version None)
Quarter: 2007Q4

REPORT INFORMATION
  Report Type: 
  Country: None (occurrence: None)
  Receive Date: 20071130
  Receipt Date: 20070901
  Transmission Date: 20080405
  Serious: No
  Sender: FDA-Public Use
  Company Number: US200709000395

PATIENT
  Age: 55 Year
  Sex: Female

DRUGS (4)
  1. BYETTA [Suspect]
     Indication: TYPE 2 DIABETES MELLITUS
     Dosage: 5 UG, 2/D, SUBCUTANEOUS, 10 UG, 2/D, SUBLINGUAL
     Route: 058
     Dates: start: 20070817
  2. BYETTA [Suspect]
     Indication: TYPE 2 DIABETES MELLITUS
     Dosage: 5 UG, 2/D, SUBCUTANEOUS, 10 UG, 2/D, SUBLINGUAL
     Route: 058
     Dates: start: 20070831
  3. EXENATIDE 5 MCG PEN, DISPOSABLE DEVICE (EXENTADIDE PEN (5MCG)) PEN, DI [Concomitant]
  4. EXENATIDE 10MCG PEN, DISPOSABLE DEVICE (EXENATIDE PEN (10MCG)) PEN, DI [Concomitant]

REACTIONS (3)
  - RASH GENERALISED [None]
  - SKIN BURNING SENSATION [None]
  - URTICARIA [None]
